FAERS Safety Report 7518206-1 (Version None)
Quarter: 2011Q2

REPORT INFORMATION
  Report Type: 
  Country: None (occurrence: None)
  Receive Date: 20110512
  Receipt Date: 20110114
  Transmission Date: 20111010
  Serious: No
  Sender: FDA-Public Use
  Company Number: 1000018179

PATIENT
  Age: 58 Year
  Sex: Male

DRUGS (7)
  1. LYRICA [Concomitant]
  2. SAVELLA [Suspect]
     Indication: POLYNEUROPATHY
     Dosage: 12.5 MG (12.5 MG, 1 IN 1 D), ORAL; 25 MG (12.5 MG, 2 IN 1 D), ORAL
     Route: 048
     Dates: start: 20110113
  3. SAVELLA [Suspect]
     Indication: POLYNEUROPATHY
     Dosage: 12.5 MG (12.5 MG, 1 IN 1 D), ORAL; 25 MG (12.5 MG, 2 IN 1 D), ORAL
     Route: 048
     Dates: start: 20110112, end: 20110112
  4. WELLBUTRIN (BUPROPION) (BUPROPION) [Concomitant]
  5. DICYCLOMINE (DICYCLOMINE) (DICYCLOMINE) [Concomitant]
  6. ACIPHEX (RABEPRAZOLE SODIUM) (RABEPRAZOLE SODIUM) [Concomitant]
  7. LIPITOR [Concomitant]

REACTIONS (2)
  - ABDOMINAL PAIN UPPER [None]
  - URINE OUTPUT INCREASED [None]
